FAERS Safety Report 23520861 (Version 1)
Quarter: 2024Q1

REPORT INFORMATION
  Report Type: Report from Study
  Country: US (occurrence: US)
  Receive Date: 20240214
  Receipt Date: 20240214
  Transmission Date: 20240410
  Serious: Yes (Death)
  Sender: FDA-Public Use
  Company Number: US-ABBVIE-5638142

PATIENT
  Sex: Male
  Weight: 110 kg

DRUGS (35)
  1. VENCLEXTA [Suspect]
     Active Substance: VENETOCLAX
     Indication: Chronic lymphocytic leukaemia
     Dosage: 50MG(1X50MG TAB) DAILY BY MOUTH WEEK 2?STRENGTH: 50 MG?DAYS I -7
     Route: 048
     Dates: start: 2023, end: 2023
  2. VENCLEXTA [Suspect]
     Active Substance: VENETOCLAX
     Indication: Chronic lymphocytic leukaemia
     Dosage: LAST ADMIN DATE: 2023?(2X10MG) BY MOUTH EVERY DAY ON WEEK 1, DAY 22-28 OF CYCLE 1?STRENGTH: 10 MG
     Route: 048
     Dates: start: 20230315
  3. VENCLEXTA [Suspect]
     Active Substance: VENETOCLAX
     Indication: Chronic lymphocytic leukaemia
     Dosage: 100MG(1X100MG) BY MOUTH DAILY WEEK 3?STRENGTH: 100 MG?DAYS ON 8-14
     Route: 048
     Dates: start: 2023, end: 2023
  4. VENCLEXTA [Suspect]
     Active Substance: VENETOCLAX
     Indication: Chronic lymphocytic leukaemia
     Dosage: 200MG(2X100MG ) DAILY WEEK 4?STRENGTH: 100 MG?DAYS 15-21
     Route: 048
     Dates: start: 2023, end: 2023
  5. VENCLEXTA [Suspect]
     Active Substance: VENETOCLAX
     Indication: Chronic lymphocytic leukaemia
     Dosage: STRENGTH: 100 MG
     Route: 048
  6. LASIX [Concomitant]
     Active Substance: FUROSEMIDE
     Indication: Product used for unknown indication
     Dosage: TAKE 1 TABLET (40 MG TOTAL) MOUTH 2 (TWO) TIMES A DAY?STRENGTH: 40 MG
     Route: 048
  7. LACTOBACILLUS ACIDOPHILUS\LACTOBACILLUS BULGARICUS [Concomitant]
     Active Substance: LACTOBACILLUS ACIDOPHILUS\LACTOBACILLUS DELBRUECKII SUBSP. BULGARICUS
     Indication: Product used for unknown indication
     Dosage: 1 MILLION CELL CHEWABLE TAB, CHEW 1 TAB IN THE MORNING AND 1 TAB AT NOON AND 1 TAB IN THE EVENING
     Route: 048
  8. ZOVIRAX [Concomitant]
     Active Substance: ACYCLOVIR
     Indication: Product used for unknown indication
     Dosage: TAKE 0.5 TABLETS (200 MG TOTAL) BY MOUTH 2 (TWO) TIMES A DAY?STRENGTH: 400 MG
     Route: 048
  9. FLOMAX [Concomitant]
     Active Substance: TAMSULOSIN HYDROCHLORIDE
     Indication: Product used for unknown indication
     Dosage: TAKE CAPSULE (0.4 MG TOTAL) BY MOUTH 1 (ONE) TIME EACH DAY?STRENGTH: 0.4 MG
     Route: 048
  10. XYZAL [Concomitant]
     Active Substance: LEVOCETIRIZINE DIHYDROCHLORIDE
     Indication: Product used for unknown indication
     Dosage: TAKE ONE TABLET BY MOUTH EVERY DAY?STRENGTH: 5 MG
     Route: 048
  11. LOVAZA [Concomitant]
     Active Substance: OMEGA-3-ACID ETHYL ESTERS
     Indication: Product used for unknown indication
     Dosage: TAKE ONE CAPSULE BY MOUTH TWICE DAILY?STRENGTH: 1 G
     Route: 048
  12. XARELTO [Concomitant]
     Active Substance: RIVAROXABAN
     Indication: Product used for unknown indication
     Dosage: TAKE 1 TABLET (20 MG TOTAL) BY MOUTH 1 (ONE) TIME EACH DAY WITH DINNER. TAKE WITH FOOD.?STRENGTH:...
     Route: 048
  13. COENZYME Q10 [Concomitant]
     Active Substance: DIETARY SUPPLEMENT\UBIDECARENONE
     Indication: Product used for unknown indication
     Dosage: TAKE 30 MG BY MOUTH 1 (ONE) TIME EACH DAY?STRENGTH: 30 MG
     Route: 048
  14. ZOFRAN [Concomitant]
     Active Substance: ONDANSETRON HYDROCHLORIDE
     Indication: Nausea
     Dosage: TAKE 1 TABLET (8 MG TOTAL) BY MOUTH EVERY 8 (EIGHT) HOURS IF NEEDED FOR NAUSEA?STRENGTH: 8 MG
     Route: 048
  15. ZAROXOLYN [Concomitant]
     Active Substance: METOLAZONE
     Indication: Product used for unknown indication
     Dosage: TAKE 1 TABLET (5 MG TOTAL) BY MOUTH 1 (ONE) TIME EACH DAY. TO BE GIVEN 30 MIN AFTER LASIX? STRENG...
     Route: 048
  16. FERROUS SULFATE [Concomitant]
     Active Substance: FERROUS SULFATE
     Indication: Product used for unknown indication
     Dosage: FORM STRENGTH : 325 MG (65 MG IRON) TABLET,  TAKE ONE TABLET BY MOUTH EVERY DAY
     Route: 048
  17. SARNA [Concomitant]
     Active Substance: CAMPHOR (SYNTHETIC)\MENTHOL
     Indication: Pruritus
     Dosage: FORM : LOTION APPLY TOPICALLY IF NEEDED FOR ITCHING
     Route: 061
  18. TYLENOL [Concomitant]
     Active Substance: ACETAMINOPHEN
     Indication: Headache
     Dosage: TAKE 1,000 MG BY MOUTH 2 (TWO) TIMES A DAY IF NEEDED FOR HEADACHES OR MILD PAIN (1-3?STRENGTH: 50...
     Route: 048
  19. VITAMIN C [Concomitant]
     Active Substance: ASCORBIC ACID
     Indication: Product used for unknown indication
     Dosage: TAKE ONE TABLET BY MOUTH TWICE DAILY?STRENGTH: 500 MG
     Route: 048
  20. TRENTAL [Concomitant]
     Active Substance: PENTOXIFYLLINE
     Indication: Product used for unknown indication
     Dosage: TAKE ONE TABLET BY MOUTH TWICE DAILY DO NOT CRUSH, CHEW OR SPLIT?STRENGTH: 400 MG
     Route: 048
  21. ARICEPT [Concomitant]
     Active Substance: DONEPEZIL HYDROCHLORIDE
     Indication: Product used for unknown indication
     Dosage: TAKE 5 MG BY MOUTH EVERY NIGHT?STRENGTH: 5 MG
     Route: 048
  22. FLONASE [Concomitant]
     Active Substance: FLUTICASONE PROPIONATE
     Indication: Product used for unknown indication
     Dosage: INHALE 1 SPRAY IN EACH NOSTRIL DAILY?STRENGTH: 50 UG
     Route: 045
  23. TOPROL XL [Concomitant]
     Active Substance: METOPROLOL SUCCINATE
     Indication: Product used for unknown indication
     Dosage: TAKE ONE TABLET BY MOUTH EVERY DAY?STRENGTH: 50 MG
     Route: 048
  24. LUTEIN [Concomitant]
     Active Substance: LUTEIN
     Indication: Product used for unknown indication
     Dosage: TAKE ONE CAPSULE BY MOUTH EVERY DAY?STRENGTH: 20 MG
     Route: 048
  25. VITAMIN D3 [Concomitant]
     Active Substance: CHOLECALCIFEROL
     Indication: Product used for unknown indication
     Dosage: 10 MCG (400 UNIT) TABLET TAKE ONE TABLET BY MOUTH EVERY DAY?STRENGTH: 10 MICROGRAM
     Route: 048
  26. MUCINEX [Concomitant]
     Active Substance: GUAIFENESIN
     Indication: Product used for unknown indication
     Dosage: TAKE 1 TABLET (600 MG TOTAL) BY MOUTH 2 (TWO) TIMES A DAY?STRENGTH: 600 MG
     Route: 048
  27. PROSCAR [Concomitant]
     Active Substance: FINASTERIDE
     Indication: Product used for unknown indication
     Dosage: TAKE 1 TABLET (5 MG TOTAL) BY MOUTH 1 (ONE) TIME EACH DAY. DO NOT CRUSH, CHEW. OR SPLIT?STRENGTH:...
     Route: 048
  28. POTASSIUM CHLORIDE [Concomitant]
     Active Substance: POTASSIUM CHLORIDE
     Indication: Product used for unknown indication
     Dosage: TAKE 20 MEQ BY MOUTH 1 (ONE) TIME EACH DAY WITH LUNCH.
     Route: 048
  29. POTASSIUM CHLORIDE [Concomitant]
     Active Substance: POTASSIUM CHLORIDE
     Indication: Product used for unknown indication
     Dosage: TAKE 40 MEQ BY MOUTH EVERY NIGHT
     Route: 048
  30. PROTONIX [Concomitant]
     Active Substance: PANTOPRAZOLE SODIUM
     Indication: Product used for unknown indication
     Dosage: TAKE ONE TABLET BY MOUTH EVERY DAY?STRENGTH: 20 MG
     Route: 048
  31. CLEOCIN [Concomitant]
     Active Substance: CLINDAMYCIN PHOSPHATE
     Indication: Product used for unknown indication
     Dosage: STRENGTH: 300 MG
  32. GAZYVA [Suspect]
     Active Substance: OBINUTUZUMAB
     Indication: Product used for unknown indication
     Route: 065
  33. ZYLOPRIM [Concomitant]
     Active Substance: ALLOPURINOL
     Indication: Product used for unknown indication
     Dosage: TAKE 4 TABLETS (400 MG TOTAL) BY MOUTH 2 (TWO) TIMES A DAY?STRENGTH: 100 MG
     Route: 048
  34. MYCELEX [Concomitant]
     Active Substance: CLOTRIMAZOLE
     Indication: Product used for unknown indication
     Dosage: TAKE 1 TABLET (10 MG TOTAL) BY MOUTH 5 (FIVE) TIMES A DAY FOR 10 DAYS?STRENGTH: 10 MG
     Route: 048
  35. COMPAZINE [Concomitant]
     Active Substance: PROCHLORPERAZINE MALEATE
     Indication: Nausea
     Dosage: TAKE 1 TABLET (10 MG TOTAL) BY MOUTH EVERY 6 (SIX) HOURS IF NEEDED FOR NAUSEA OR VOMITING?STRENGT...
     Route: 048

REACTIONS (1)
  - Wound infection [Fatal]
